FAERS Safety Report 20573608 (Version 5)
Quarter: 2022Q4

REPORT INFORMATION
  Report Type: Other
  Country: ZA (occurrence: None)
  Receive Date: 20220309
  Receipt Date: 20221018
  Transmission Date: 20230113
  Serious: Yes (Other)
  Sender: FDA-Public Use
  Company Number: ZA-ROCHE-3037023

PATIENT
  Age: 57 Year
  Sex: Female

DRUGS (1)
  1. OCREVUS [Suspect]
     Active Substance: OCRELIZUMAB
     Indication: Primary progressive multiple sclerosis
     Dosage: 300 MG ON DAY 1 AND DAY 15 THEREAFTER EVERY 6 MONTHS
     Route: 042
     Dates: start: 20211027

REACTIONS (6)
  - Muscular weakness [Unknown]
  - Demyelination [Unknown]
  - Hyperintensity in brain deep nuclei [Unknown]
  - Cerebral disorder [Unknown]
  - Spinal osteoarthritis [Unknown]
  - Spinal disorder [Unknown]

NARRATIVE: CASE EVENT DATE: 20220223
